FAERS Safety Report 25002400 (Version 2)
Quarter: 2025Q1

REPORT INFORMATION
  Report Type: Report from Study
  Country: CL (occurrence: CL)
  Receive Date: 20250224
  Receipt Date: 20250318
  Transmission Date: 20250409
  Serious: Yes (Other)
  Sender: ALEXION PHARMACEUTICALS
  Company Number: CL-AstraZeneca-CH-00808002A

PATIENT
  Age: 69 Year
  Weight: 67 kg

DRUGS (6)
  1. OSIMERTINIB [Suspect]
     Active Substance: OSIMERTINIB
     Indication: Ovarian cancer
     Dosage: 600 MILLIGRAM, QD
  2. OSIMERTINIB [Suspect]
     Active Substance: OSIMERTINIB
     Dosage: 500 MILLIGRAM, QD
  3. OSIMERTINIB [Suspect]
     Active Substance: OSIMERTINIB
     Dosage: 200 MILLIGRAM, BID
  4. Folifer [Concomitant]
     Dosage: 2 DOSAGE FORM, QD
     Route: 065
  5. Folifer [Concomitant]
     Dosage: 1 DOSAGE FORM, QD
     Route: 065
  6. VITAMINS [Concomitant]
     Active Substance: VITAMINS
     Dosage: 1 DOSAGE FORM, QD
     Route: 065

REACTIONS (5)
  - Immunodeficiency [Recovering/Resolving]
  - Full blood count decreased [Recovered/Resolved]
  - Haematocrit decreased [Recovered/Resolved]
  - Platelet count decreased [Recovered/Resolved]
  - Blood creatinine increased [Recovered/Resolved]
